FAERS Safety Report 9197727 (Version 4)
Quarter: 2013Q2

REPORT INFORMATION
  Report Type: Spontaneous
  Country: AU (occurrence: AU)
  Receive Date: 20130328
  Receipt Date: 20130430
  Transmission Date: 20140414
  Serious: Yes (Death, Hospitalization)
  Sender: FDA-Public Use
  Company Number: AU-B.I. PHARMACEUTICALS,INC./RIDGEFIELD-2013-AU-00387AU

PATIENT
  Sex: Male

DRUGS (10)
  1. PRADAXA [Suspect]
     Indication: CEREBROVASCULAR ACCIDENT PROPHYLAXIS
     Dosage: 220 MG
     Dates: start: 20110620
  2. PRADAXA [Suspect]
     Indication: ATRIAL FIBRILLATION
  3. ATACAND PLUS [Concomitant]
     Dosage: 32/12.5 MG MANE
  4. ASPIRIN [Concomitant]
     Dosage: 100 MG
  5. AVODART [Concomitant]
     Dosage: 500 MCG
  6. BETALOC [Concomitant]
     Dosage: 50 MG
  7. CRESTOR [Concomitant]
     Dosage: 5 MG
  8. PLENDIL ER [Concomitant]
     Dosage: 10 MG
  9. MACUVISION [Concomitant]
  10. LUTEIN VISION [Concomitant]

REACTIONS (3)
  - Cardiac failure [Fatal]
  - Hypotension [Fatal]
  - Circulatory collapse [Fatal]
